FAERS Safety Report 20136477 (Version 1)
Quarter: 2021Q4

REPORT INFORMATION
  Report Type: Spontaneous
  Country: US (occurrence: US)
  Receive Date: 20211201
  Receipt Date: 20211201
  Transmission Date: 20220303
  Serious: Yes (Other)
  Sender: FDA-Public Use
  Company Number: US-NOVARTISTESTPH-NVSC2021US266014

PATIENT
  Age: 53 Year
  Sex: Male

DRUGS (6)
  1. DOCETAXEL [Suspect]
     Active Substance: DOCETAXEL
     Indication: Metastases to spine
     Dosage: UNK
     Route: 065
     Dates: start: 202003, end: 202008
  2. CARBOPLATIN [Suspect]
     Active Substance: CARBOPLATIN
     Indication: Metastases to spine
     Dosage: UNK (8 CYCLES)
     Route: 065
     Dates: start: 202003, end: 202008
  3. CARBOPLATIN [Suspect]
     Active Substance: CARBOPLATIN
     Dosage: UNK
     Route: 065
     Dates: start: 20210720, end: 20210831
  4. CABAZITAXEL [Suspect]
     Active Substance: CABAZITAXEL
     Indication: Metastases to spine
     Dosage: UNK
     Route: 065
     Dates: start: 20210720, end: 20210831
  5. ABIRATERONE [Concomitant]
     Active Substance: ABIRATERONE
     Indication: Product used for unknown indication
     Dosage: UNK
     Route: 065
     Dates: start: 201810
  6. ENZALUTAMIDE [Concomitant]
     Active Substance: ENZALUTAMIDE
     Indication: Product used for unknown indication
     Dosage: UNK
     Route: 065
     Dates: start: 201909

REACTIONS (2)
  - Metastases to spine [Unknown]
  - Malignant neoplasm progression [Unknown]
